FAERS Safety Report 18124263 (Version 1)
Quarter: 2020Q3

REPORT INFORMATION
  Report Type: Spontaneous
  Country: GB (occurrence: GB)
  Receive Date: 20200807
  Receipt Date: 20200807
  Transmission Date: 20201103
  Serious: Yes (Other)
  Sender: FDA-Public Use
  Company Number: GB-GILEAD-2020-0489178

PATIENT
  Age: 65 Year
  Sex: Male

DRUGS (7)
  1. HUMULIN M3 [Concomitant]
     Active Substance: INSULIN HUMAN
  2. LISINOPRIL. [Concomitant]
     Active Substance: LISINOPRIL
  3. ROPINIROLE [ROPINIROLE HYDROCHLORIDE] [Concomitant]
  4. ACICLOVIR [Concomitant]
     Active Substance: ACYCLOVIR
  5. ODEFSEY [Suspect]
     Active Substance: EMTRICITABINE\RILPIVIRINE HYDROCHLORIDE\TENOFOVIR ALAFENAMIDE FUMARATE
     Indication: HIV INFECTION
     Dosage: 1 DOSAGE FORM, QD
     Route: 048
     Dates: start: 20200303
  6. LIPITOR [Concomitant]
     Active Substance: ATORVASTATIN CALCIUM
  7. METFORMIN [Concomitant]
     Active Substance: METFORMIN HYDROCHLORIDE

REACTIONS (4)
  - Insulin resistance [Not Recovered/Not Resolved]
  - Diabetes mellitus inadequate control [Not Recovered/Not Resolved]
  - Nightmare [Unknown]
  - Hallucination [Unknown]

NARRATIVE: CASE EVENT DATE: 20200505
